FAERS Safety Report 10026336 (Version 1)
Quarter: 2014Q1

REPORT INFORMATION
  Report Type: Spontaneous
  Country: US (occurrence: US)
  Receive Date: 20140321
  Receipt Date: 20140321
  Transmission Date: 20141002
  Serious: No
  Sender: FDA-Public Use
  Company Number: US-ALLERGAN-1308258US

PATIENT
  Age: 58 Year
  Sex: Female

DRUGS (1)
  1. LUMIGAN [Suspect]
     Indication: GROWTH OF EYELASHES
     Route: 047

REACTIONS (3)
  - Off label use [Unknown]
  - Wrong technique in drug usage process [Unknown]
  - Drug ineffective [Unknown]
